FAERS Safety Report 20378592 (Version 1)
Quarter: 2022Q1

REPORT INFORMATION
  Report Type: Spontaneous
  Country: JP (occurrence: JP)
  Receive Date: 20220126
  Receipt Date: 20220126
  Transmission Date: 20220423
  Serious: Yes (Other)
  Sender: FDA-Public Use
  Company Number: JP-ELI_LILLY_AND_COMPANY-JP202201005549

PATIENT
  Age: 73 Year
  Sex: Male

DRUGS (9)
  1. TALTZ [Suspect]
     Active Substance: IXEKIZUMAB
     Indication: Psoriasis
     Dosage: 80 MG, EVERY TWO WEEKS
     Route: 058
     Dates: start: 20210520, end: 20211207
  2. PREDNISOLONE ACETATE [Suspect]
     Active Substance: PREDNISOLONE ACETATE
     Indication: Psoriatic arthropathy
     Dosage: 10 MG, DAILY
     Route: 048
     Dates: start: 20210319
  3. PREDNISOLONE ACETATE [Suspect]
     Active Substance: PREDNISOLONE ACETATE
     Dosage: 5 MG, DAILY
     Route: 048
     Dates: start: 20211105
  4. PREDNISOLONE [Suspect]
     Active Substance: PREDNISOLONE
     Indication: Psoriatic arthropathy
     Dosage: 4 MG, DAILY
     Route: 048
     Dates: start: 20211105
  5. ELDECALCITOL [Concomitant]
     Active Substance: ELDECALCITOL
     Dosage: 0.75 UG, DAILY
     Dates: start: 20210621
  6. BONALON [Concomitant]
     Active Substance: ALENDRONATE SODIUM
     Dosage: 35 MG, WEEKLY (1/W)
     Dates: start: 20210621
  7. CELECOXIB [Concomitant]
     Active Substance: CELECOXIB
     Dosage: 100 MG, BID
     Dates: start: 20210312
  8. REBAMIPIDE [Concomitant]
     Active Substance: REBAMIPIDE
     Dosage: 100 MG, BID
     Dates: start: 20210312
  9. LANSOPRAZOLE [Concomitant]
     Active Substance: LANSOPRAZOLE
     Dosage: 15 MG, DAILY
     Dates: start: 20210319

REACTIONS (1)
  - Bronchopulmonary aspergillosis [Not Recovered/Not Resolved]

NARRATIVE: CASE EVENT DATE: 20211111
